FAERS Safety Report 7486540-X (Version None)
Quarter: 2011Q2

REPORT INFORMATION
  Report Type: 
  Country: None (occurrence: None)
  Receive Date: 20110517
  Receipt Date: 20100510
  Transmission Date: 20111010
  Serious: No
  Sender: FDA-Public Use
  Company Number: US-NOVEN-ALL1-2010-02753

PATIENT

DRUGS (3)
  1. DEPAKOTE [Concomitant]
     Dosage: 250 MG, 1X/DAY:QD (MORNING)
     Route: 048
     Dates: start: 20081101
  2. DAYTRANA [Suspect]
     Dosage: 15 MG, 1X/DAY:QD
     Route: 062
     Dates: start: 20100510
  3. DEPAKOTE [Concomitant]
     Dosage: 375 MG, 1X/DAY:QD (NIGHTLY)
     Route: 048
     Dates: start: 20081101

REACTIONS (4)
  - DECREASED APPETITE [None]
  - PALLOR [None]
  - NAUSEA [None]
  - ASTHENIA [None]
